FAERS Safety Report 17976675 (Version 1)
Quarter: 2020Q3

REPORT INFORMATION
  Report Type: Spontaneous
  Country: JP (occurrence: JP)
  Receive Date: 20200703
  Receipt Date: 20200703
  Transmission Date: 20201103
  Serious: Yes (Death, Other)
  Sender: FDA-Public Use
  Company Number: JP-ROCHE-2634377

PATIENT
  Age: 85 Year
  Sex: Female
  Weight: 55 kg

DRUGS (10)
  1. SODIUM GUALENATE HYDRATE [Concomitant]
     Active Substance: SODIUM GUALENATE MONOHYDRATE
     Dosage: FOUR TIMES ON OCULUS UTERQUE THE FIRST
     Route: 031
  2. MICARDIS [Concomitant]
     Active Substance: TELMISARTAN
     Route: 048
  3. AMLODIPINE [Concomitant]
     Active Substance: AMLODIPINE BESYLATE
     Route: 048
  4. KARY UNI [Concomitant]
     Active Substance: PIRENOXINE
     Dosage: FOUR TIMES ON OCULUS UTERQUE THE FIRST
     Route: 031
  5. HERCEPTIN [Suspect]
     Active Substance: TRASTUZUMAB
     Indication: BREAST CANCER
     Dosage: DOSAGE IS UNCERTAIN.
     Route: 041
     Dates: start: 20190704, end: 20200213
  6. FLUITRAN [Concomitant]
     Active Substance: TRICHLORMETHIAZIDE
     Route: 048
  7. GLAKAY [Concomitant]
     Active Substance: MENATETRENONE
     Route: 048
  8. EDIROL [Concomitant]
     Active Substance: ELDECALCITOL
     Route: 048
  9. PYDOXAL [Concomitant]
     Active Substance: PYRIDOXAL
     Route: 048
  10. BESOFTEN [Concomitant]
     Active Substance: PENTOSAN POLYSULFATE SODIUM
     Dosage: DOSAGE IS UNCERTAIN.
     Route: 062

REACTIONS (6)
  - Multiple organ dysfunction syndrome [Unknown]
  - Dehydration [Unknown]
  - Blood pressure decreased [Unknown]
  - Interstitial lung disease [Fatal]
  - Pneumothorax [Unknown]
  - Autoantibody positive [Fatal]

NARRATIVE: CASE EVENT DATE: 20200213
